FAERS Safety Report 6674275-2 (Version None)
Quarter: 2010Q2

REPORT INFORMATION
  Report Type: 
  Country: None (occurrence: None)
  Receive Date: 20100409
  Receipt Date: 20100329
  Transmission Date: 20101027
  Serious: Yes (Other)
  Sender: FDA-Public Use
  Company Number: FR-JNJFOC-20100300507

PATIENT
  Age: 15 Year
  Sex: Female

DRUGS (1)
  1. TOPALGIC L.P [Suspect]
     Indication: PAIN
     Dosage: 2 OR 3 TABLETS
     Route: 048

REACTIONS (2)
  - DISTURBANCE IN ATTENTION [None]
  - VICTIM OF SEXUAL ABUSE [None]
